FAERS Safety Report 7545516-4 (Version None)
Quarter: 2011Q2

REPORT INFORMATION
  Report Type: 
  Country: None (occurrence: None)
  Receive Date: 20110614
  Receipt Date: 20110120
  Transmission Date: 20111010
  Serious: Yes (Other)
  Sender: FDA-Public Use
  Company Number: US-BAYER-201036647NA

PATIENT
  Age: 27 Year
  Sex: Female
  Weight: 58.957 kg

DRUGS (13)
  1. ZOMEG [Concomitant]
     Indication: UNEVALUABLE EVENT
  2. YAZ [Suspect]
     Indication: CONTRACEPTION
     Route: 048
     Dates: start: 20080701
  3. MOTRIN [Concomitant]
     Dosage: UNK
     Dates: start: 20060101
  4. POTASSIUM CHLORIDE [Concomitant]
  5. SARAFEM [Concomitant]
  6. YAZ [Suspect]
     Indication: PREMENSTRUAL SYNDROME
     Dosage: UNK
     Dates: end: 20070712
  7. LOESTRIN 1.5/30 [Concomitant]
  8. METROGEL [Concomitant]
  9. ONE-A-DAY VITAMIN [Concomitant]
     Dosage: UNK
     Dates: start: 20070901
  10. YAZ [Suspect]
  11. AMOXICILLIN [Concomitant]
  12. LEVONORGESTREL + ETHINYL ESTRADIOL [Concomitant]
  13. SYNTHROID [Concomitant]

REACTIONS (8)
  - HEADACHE [None]
  - CHOLECYSTITIS CHRONIC [None]
  - DIZZINESS [None]
  - MENORRHAGIA [None]
  - MENTAL DISORDER [None]
  - GALLBLADDER INJURY [None]
  - THYROID DISORDER [None]
  - DIARRHOEA [None]
